FAERS Safety Report 7391899-8 (Version None)
Quarter: 2011Q2

REPORT INFORMATION
  Report Type: 
  Country: None (occurrence: None)
  Receive Date: 20110404
  Receipt Date: 20110324
  Transmission Date: 20111010
  Serious: Yes (Hospitalization)
  Sender: FDA-Public Use
  Company Number: BR-MEDIMMUNE-MEDI-0013005

PATIENT
  Weight: 7.9 kg

DRUGS (2)
  1. SYNAGIS [Suspect]
     Route: 058
     Dates: start: 20100823, end: 20100823
  2. SYNAGIS [Suspect]
     Indication: BRONCHOPULMONARY DYSPLASIA
     Route: 058
     Dates: start: 20100528, end: 20100528

REACTIONS (5)
  - BRONCHIOLITIS [None]
  - FATIGUE [None]
  - BRONCHOPNEUMONIA [None]
  - PYREXIA [None]
  - NASOPHARYNGITIS [None]
